FAERS Safety Report 6469932-7 (Version None)
Quarter: 2009Q4

REPORT INFORMATION
  Report Type: 
  Country: None (occurrence: None)
  Receive Date: 20091203
  Receipt Date: 20071220
  Transmission Date: 20100525
  Serious: Yes (Hospitalization)
  Sender: FDA-Public Use
  Company Number: US-ELI_LILLY_AND_COMPANY-US200710005007

PATIENT
  Sex: Female

DRUGS (5)
  1. FORTEO [Suspect]
     Indication: OSTEOPOROSIS
     Dosage: UNK, UNK
     Dates: start: 20070921, end: 20070101
  2. FORTEO [Suspect]
     Dates: start: 20070101, end: 20070101
  3. COZAAR [Concomitant]
     Indication: BLOOD PRESSURE
     Dosage: UNK, UNK
     Dates: end: 20071001
  4. REQUIP [Concomitant]
     Indication: PARKINSON'S DISEASE
  5. SINEMET [Concomitant]
     Indication: PARKINSON'S DISEASE

REACTIONS (12)
  - ARTHRITIS [None]
  - BACK DISORDER [None]
  - BACK PAIN [None]
  - GAIT DISTURBANCE [None]
  - HYPOAESTHESIA [None]
  - HYPOTENSION [None]
  - MOBILITY DECREASED [None]
  - OEDEMA PERIPHERAL [None]
  - PAIN [None]
  - PAIN IN EXTREMITY [None]
  - SPINAL COLUMN STENOSIS [None]
  - SPINAL FRACTURE [None]
